FAERS Safety Report 24800345 (Version 1)
Quarter: 2025Q1

REPORT INFORMATION
  Report Type: Spontaneous
  Country: US (occurrence: None)
  Receive Date: 20250102
  Receipt Date: 20250102
  Transmission Date: 20250408
  Serious: Yes (Hospitalization)
  Sender: FDA-CTU
  Company Number: None

PATIENT
  Sex: Female

DRUGS (4)
  1. AMBRISENTAN [Suspect]
     Active Substance: AMBRISENTAN
     Indication: Pulmonary arterial hypertension
     Dosage: FREQUENCY : DAILY;?
     Route: 048
     Dates: start: 202407
  2. ADEMPAS [Suspect]
     Active Substance: RIOCIGUAT
  3. TYVASO [Suspect]
     Active Substance: TREPROSTINIL
  4. TYMLOS PF PEN [Concomitant]

REACTIONS (3)
  - Influenza [None]
  - Pneumonia [None]
  - Therapy interrupted [None]
